FAERS Safety Report 5396202-0 (Version None)
Quarter: 2007Q3

REPORT INFORMATION
  Report Type: 
  Country: None (occurrence: None)
  Receive Date: 20070725
  Receipt Date: 20070718
  Transmission Date: 20080115
  Serious: Yes (Other)
  Sender: FDA-Public Use
  Company Number: PHBS2007JP11572

PATIENT
  Age: 88 Year
  Sex: Female

DRUGS (2)
  1. VOLTAREN [Suspect]
     Indication: HERPES ZOSTER
     Dosage: 25 MG, BID
     Route: 054
  2. ZOVIRAX [Concomitant]
     Indication: HERPES ZOSTER

REACTIONS (4)
  - DEHYDRATION [None]
  - MENINGITIS [None]
  - RENAL FAILURE ACUTE [None]
  - STAPHYLOCOCCAL SEPSIS [None]
